FAERS Safety Report 5190458-5 (Version None)
Quarter: 2006Q4

REPORT INFORMATION
  Report Type: 
  Country: None (occurrence: None)
  Receive Date: 20061222
  Receipt Date: 20060217
  Transmission Date: 20070319
  Serious: Yes (Hospitalization)
  Sender: FDA-Public Use
  Company Number: US-ELI_LILLY_AND_COMPANY-US200602003830

PATIENT
  Age: 7 Year
  Sex: Male
  Weight: 137 kg

DRUGS (4)
  1. ZYPREXA [Suspect]
     Indication: AUTISM
     Dosage: 5 MG, UNK
     Dates: start: 20000101, end: 20010501
  2. ZYPREXA [Suspect]
     Dosage: 10 MG, UNK
  3. RISPERIDONE [Concomitant]
     Dosage: UNK, UNK
     Dates: start: 20010101, end: 20021101
  4. SEROQUEL [Concomitant]
     Dosage: UNK, UNK
     Dates: start: 20010401

REACTIONS (5)
  - HYPERTENSION [None]
  - METABOLIC DISORDER [None]
  - OBESITY [None]
  - PANCREATECTOMY [None]
  - PANCREATITIS [None]
